FAERS Safety Report 7780534-2 (Version None)
Quarter: 2011Q3

REPORT INFORMATION
  Report Type: 
  Country: None (occurrence: None)
  Receive Date: 20110927
  Receipt Date: 20110921
  Transmission Date: 20111222
  Serious: Yes (Death, Other)
  Sender: FDA-Public Use
  Company Number: IL-AMGEN-ISRSP2011049179

PATIENT
  Age: 60 Year
  Sex: Male

DRUGS (4)
  1. TAXOTERE [Suspect]
  2. NEULASTIM [Suspect]
     Indication: PROPHYLAXIS
  3. CARBOPLATIN [Suspect]
  4. FLUOROURACIL [Suspect]

REACTIONS (2)
  - FEBRILE NEUTROPENIA [None]
  - NEUTROPENIA [None]
